FAERS Safety Report 17763681 (Version 1)
Quarter: 2020Q2

REPORT INFORMATION
  Report Type: Spontaneous
  Country: US (occurrence: US)
  Receive Date: 20200510
  Receipt Date: 20200510
  Transmission Date: 20200714
  Serious: Yes (Hospitalization)
  Sender: FDA-Public Use
  Company Number: US-CADILA HEALTHCARE LIMITED-US-ZYDUS-048893

PATIENT

DRUGS (1)
  1. GABAPENTINE [Suspect]
     Active Substance: GABAPENTIN
     Indication: MUSCLE SPASMS
     Dosage: 100 MILLIGRAM, BID
     Route: 065

REACTIONS (2)
  - Myoclonus [Recovered/Resolved]
  - Mental status changes [Recovered/Resolved]
